FAERS Safety Report 13460813 (Version 1)
Quarter: 2017Q2

REPORT INFORMATION
  Report Type: Spontaneous
  Country: US (occurrence: US)
  Receive Date: 20170420
  Receipt Date: 20170420
  Transmission Date: 20170830
  Serious: No
  Sender: FDA-Public Use
  Company Number: US-DRREDDYS-DRL/USA/16/0080353

PATIENT
  Age: 73 Year
  Sex: Male
  Weight: 66.68 kg

DRUGS (10)
  1. SILVER SULFADIAZINE. [Suspect]
     Active Substance: SILVER SULFADIAZINE
     Indication: RADIATION SKIN INJURY
     Dosage: ONCE TO TWICE DAILY
     Route: 061
     Dates: start: 20160601
  2. TIZANIDINE. [Concomitant]
     Active Substance: TIZANIDINE
     Indication: PRODUCT USED FOR UNKNOWN INDICATION
     Route: 065
  3. CLINDAMYCIN. [Concomitant]
     Active Substance: CLINDAMYCIN
     Indication: RASH
     Route: 061
  4. TRAMADOL. [Concomitant]
     Active Substance: TRAMADOL
     Indication: PRODUCT USED FOR UNKNOWN INDICATION
     Route: 065
     Dates: start: 201602
  5. DOXYCYCLINE. [Concomitant]
     Active Substance: DOXYCYCLINE
     Indication: RASH
     Route: 065
  6. ZETIA [Concomitant]
     Active Substance: EZETIMIBE
     Indication: PRODUCT USED FOR UNKNOWN INDICATION
     Route: 065
  7. ACETAMINOPHEN. [Concomitant]
     Active Substance: ACETAMINOPHEN
     Indication: PRODUCT USED FOR UNKNOWN INDICATION
     Route: 065
  8. PROTONIX [Concomitant]
     Active Substance: PANTOPRAZOLE SODIUM
     Indication: PRODUCT USED FOR UNKNOWN INDICATION
     Route: 065
  9. SERZONE [Concomitant]
     Active Substance: NEFAZODONE HYDROCHLORIDE
     Indication: PRODUCT USED FOR UNKNOWN INDICATION
     Route: 065
  10. FLUCONAZOLE. [Concomitant]
     Active Substance: FLUCONAZOLE
     Indication: PRODUCT USED FOR UNKNOWN INDICATION
     Route: 065
     Dates: start: 20160531

REACTIONS (3)
  - Application site dryness [Not Recovered/Not Resolved]
  - Application site erythema [Unknown]
  - Application site pain [Not Recovered/Not Resolved]

NARRATIVE: CASE EVENT DATE: 20160601
